FAERS Safety Report 21054884 (Version 1)
Quarter: 2022Q3

REPORT INFORMATION
  Report Type: Spontaneous
  Country: JP (occurrence: JP)
  Receive Date: 20220707
  Receipt Date: 20220707
  Transmission Date: 20221026
  Serious: Yes (Hospitalization, Other)
  Sender: FDA-Public Use
  Company Number: JP-CHUGAI-2022025509

PATIENT
  Age: 86 Year
  Sex: Female

DRUGS (8)
  1. ACTEMRA [Suspect]
     Active Substance: TOCILIZUMAB
     Indication: Rheumatoid arthritis
     Dosage: 8 MILLIGRAM, ONCE/4WEEKS
     Route: 041
     Dates: start: 20200915, end: 20211013
  2. ACTEMRA [Suspect]
     Active Substance: TOCILIZUMAB
     Indication: Rheumatoid arthritis
     Route: 058
     Dates: start: 20211014, end: 20220522
  3. ETODOLAC [Suspect]
     Active Substance: ETODOLAC
     Indication: Rheumatoid arthritis
     Dosage: 2 DOSAGE FORM, BID, AFTER BREAKFAST AND DINNER
     Route: 048
     Dates: start: 20200630
  4. ETODOLAC [Suspect]
     Active Substance: ETODOLAC
     Dosage: UNK, PRN
     Route: 048
  5. ZINC [Suspect]
     Active Substance: ZINC
     Indication: Blood zinc decreased
     Dosage: 1 DOSAGE FORM, QD, AFTER BREAKFAST
     Route: 048
     Dates: start: 20220106
  6. RINDERON [Concomitant]
     Indication: Rheumatoid arthritis
     Dosage: 0.5 MILLIGRAM
     Route: 065
     Dates: start: 20200630, end: 20210331
  7. RINDERON [Concomitant]
     Dosage: 0.25 MILLIGRAM
     Route: 065
     Dates: start: 20210401, end: 20210624
  8. AZULFIDINE EN-TABS [Concomitant]
     Active Substance: SULFASALAZINE
     Indication: Rheumatoid arthritis
     Dosage: 500 MILLIGRAM
     Route: 065
     Dates: start: 20200630, end: 20201210

REACTIONS (8)
  - Cerebral infarction [Unknown]
  - Transaminases increased [Unknown]
  - Oral candidiasis [Not Recovered/Not Resolved]
  - Tongue coated [Recovering/Resolving]
  - Blood zinc decreased [Recovering/Resolving]
  - Discouragement [Unknown]
  - Glossitis [Unknown]
  - Insomnia [Not Recovered/Not Resolved]

NARRATIVE: CASE EVENT DATE: 20201210
